FAERS Safety Report 19985608 (Version 3)
Quarter: 2021Q4

REPORT INFORMATION
  Report Type: Report from Study
  Country: GB (occurrence: GB)
  Receive Date: 20211021
  Receipt Date: 20211110
  Transmission Date: 20220303
  Serious: Yes (Hospitalization, Other)
  Sender: FDA-Public Use
  Company Number: GB-BAXTER-2021BAX031692

PATIENT
  Age: 2 Year
  Sex: Female
  Weight: 10.8 kg

DRUGS (27)
  1. CYCLOPHOSPHAMIDE [Suspect]
     Active Substance: CYCLOPHOSPHAMIDE
     Indication: Refractory cancer
     Dosage: 250 MG/M2 (GIVEN FOR 5 DAYS)
     Route: 042
     Dates: start: 20210802, end: 20210827
  2. CYCLOPHOSPHAMIDE [Suspect]
     Active Substance: CYCLOPHOSPHAMIDE
     Indication: Recurrent cancer
  3. VENETOCLAX [Suspect]
     Active Substance: VENETOCLAX
     Indication: Refractory cancer
     Dosage: 80 MG, QD, ROUTE (VIA TUBE SUPPORT)
     Route: 065
     Dates: start: 20210802, end: 20210802
  4. VENETOCLAX [Suspect]
     Active Substance: VENETOCLAX
     Indication: Recurrent cancer
     Dosage: 150 MG, QD, ROUTE (VIA TUBE SUPPORT)
     Route: 065
     Dates: start: 20210803, end: 20210811
  5. VENETOCLAX [Suspect]
     Active Substance: VENETOCLAX
     Dosage: 150 MG, QD
     Route: 065
     Dates: start: 20210823, end: 20210901
  6. TOPOTECAN HYDROCHLORIDE [Suspect]
     Active Substance: TOPOTECAN HYDROCHLORIDE
     Indication: Refractory cancer
     Dosage: GIVEN FOR 5 DAYS EVERY 21 DAYS
     Route: 042
     Dates: start: 20210802, end: 20210827
  7. TOPOTECAN HYDROCHLORIDE [Suspect]
     Active Substance: TOPOTECAN HYDROCHLORIDE
     Indication: Recurrent cancer
  8. CYCLIZINE [Concomitant]
     Active Substance: CYCLIZINE
     Indication: Prophylaxis of nausea and vomiting
     Route: 065
     Dates: start: 20210824
  9. CYCLIZINE [Concomitant]
     Active Substance: CYCLIZINE
     Indication: Vomiting
     Dosage: 5.5 MG, TID (16.5MG)
     Route: 042
     Dates: start: 20210802, end: 20210802
  10. DEXAMETHASONE [Concomitant]
     Active Substance: DEXAMETHASONE
     Indication: Prophylaxis
     Dosage: 13 ML, BID
     Route: 048
     Dates: start: 20210808
  11. DEXAMETHASONE [Concomitant]
     Active Substance: DEXAMETHASONE
     Dosage: 2 MG, BID
     Route: 042
     Dates: start: 20210802, end: 20210807
  12. MORPHINE SULFATE [Concomitant]
     Active Substance: MORPHINE SULFATE
     Indication: Pain management
     Dosage: 2.4 MG, 1 IN 4 HOURS AS REQUIRED
     Route: 048
     Dates: start: 20210805
  13. MORPHINE SULFATE [Concomitant]
     Active Substance: MORPHINE SULFATE
     Route: 048
     Dates: start: 20210803, end: 20210804
  14. MORPHINE SULFATE [Concomitant]
     Active Substance: MORPHINE SULFATE
     Route: 048
     Dates: start: 20210802, end: 20210802
  15. ONDANSETRON [Concomitant]
     Active Substance: ONDANSETRON
     Indication: Vomiting
     Route: 065
     Dates: start: 20210824
  16. ONDANSETRON [Concomitant]
     Active Substance: ONDANSETRON
     Indication: Prophylaxis
     Dosage: 2 MG, TID
     Route: 048
     Dates: start: 20210801, end: 20210802
  17. ONDANSETRON [Concomitant]
     Active Substance: ONDANSETRON
     Dosage: 2.5 MG, TID
     Route: 042
     Dates: start: 20210802, end: 20210808
  18. paracetamol alcohol free [Concomitant]
     Indication: Pain management
     Dosage: 156 MG (1 IN 6 AS REQUIRED) (ALCOHOL FREE, SUSPENSION AND EFFERVESCENT GRANULES FORORAL SUSPENSION)
     Route: 048
     Dates: start: 20210802
  19. ACETAMINOPHEN [Concomitant]
     Active Substance: ACETAMINOPHEN
     Indication: Pain management
     Dosage: 155 MG, QD, 1 IN 1 AS REQUIRED
     Route: 042
     Dates: start: 20210802
  20. MELATONIN [Concomitant]
     Active Substance: MELATONIN
     Indication: Prophylaxis
     Dosage: 2 MG, (2 MG, 1 IN 1 D)
     Route: 048
     Dates: start: 20210801
  21. METOCLOPRAMIDE [Concomitant]
     Active Substance: METOCLOPRAMIDE
     Indication: Prophylaxis of nausea and vomiting
     Dosage: 1 MG, TID
     Route: 042
     Dates: start: 20210803
  22. METOCLOPRAMIDE [Concomitant]
     Active Substance: METOCLOPRAMIDE
     Dosage: 1 MG, TID
     Route: 048
     Dates: start: 20210801, end: 20210801
  23. FUROSEMIDE [Concomitant]
     Active Substance: FUROSEMIDE
     Indication: Transfusion
     Route: 042
     Dates: start: 20210805
  24. FUROSEMIDE [Concomitant]
     Active Substance: FUROSEMIDE
     Indication: Prophylaxis
  25. METHADONE [Concomitant]
     Active Substance: METHADONE HYDROCHLORIDE
     Indication: Pain management
     Route: 048
     Dates: start: 20210805
  26. FILGRASTIM [Concomitant]
     Active Substance: FILGRASTIM
     Indication: Chemotherapy
     Dosage: 1.5 MG, QD
     Route: 030
     Dates: start: 20210808, end: 20210808
  27. FILGRASTIM [Concomitant]
     Active Substance: FILGRASTIM
     Dosage: 1.5 MG, QD
     Route: 030
     Dates: start: 20210829, end: 20210829

REACTIONS (3)
  - Upper respiratory tract infection [Not Recovered/Not Resolved]
  - Febrile neutropenia [Recovered/Resolved]
  - Pyrexia [Unknown]

NARRATIVE: CASE EVENT DATE: 20210909
